FAERS Safety Report 8764103 (Version 2)
Quarter: 2012Q4

REPORT INFORMATION
  Report Type: 
  Country: BR (occurrence: BR)
  Receive Date: 20120831
  Receipt Date: 20121106
  Transmission Date: 20130627
  Serious: Yes (Hospitalization, Other)
  Sender: FDA-Public Use
  Company Number: BR-AMGEN-BRASP2012002508

PATIENT
  Age: 46 Year
  Sex: Female
  Weight: 78 kg

DRUGS (15)
  1. ENBREL [Suspect]
     Indication: RHEUMATOID ARTHRITIS
     Dosage: 50 mg, once weekly
     Route: 058
     Dates: start: 201201, end: 201203
  2. ENBREL [Suspect]
     Dosage: 50 mg, once weekly
     Route: 058
     Dates: start: 201210
  3. ENALAPRIL [Concomitant]
     Indication: BLOOD PRESSURE INCREASED
     Dosage: 25 mg, 2x/day
  4. ARADOIS [Concomitant]
     Dosage: 150 mg, 2x/day
  5. AMLODIPINE [Concomitant]
     Indication: BLOOD PRESSURE INCREASED
     Dosage: 5 mg, 1x/day
  6. ATENOLOL [Concomitant]
     Indication: BLOOD PRESSURE INCREASED
     Dosage: 100 mg, 1x/day
  7. HYDROCHLOROTHIAZIDE [Concomitant]
     Dosage: 25 mg, 1x/day
  8. METFORMIN [Concomitant]
     Indication: DIABETES MELLITUS
     Dosage: 850 mg, 1x/day
  9. METHOTREXATE [Concomitant]
     Dosage: UNK
  10. SOMALGIN [Concomitant]
     Dosage: 100 mg, 1x/day
  11. FOLIC ACID [Concomitant]
     Dosage: UNK
  12. PREDNISONE [Concomitant]
     Dosage: UNK
  13. LOSARTAN [Concomitant]
     Indication: BLOOD PRESSURE INCREASED
     Dosage: UNK
  14. AAS [Concomitant]
     Indication: BLOOD PRESSURE INCREASED
     Dosage: UNK
  15. SIMVASTATIN [Concomitant]
     Indication: CARDIAC DISORDER
     Dosage: UNK

REACTIONS (8)
  - Cough [Unknown]
  - Application site swelling [Recovered/Resolved]
  - Urinary tract infection [Unknown]
  - Influenza [Unknown]
  - Tuberculosis [Unknown]
  - Application site erythema [Not Recovered/Not Resolved]
  - Application site pruritus [Not Recovered/Not Resolved]
  - Injection site pain [Unknown]
